FAERS Safety Report 21160528 (Version 1)
Quarter: 2022Q3

REPORT INFORMATION
  Report Type: Spontaneous
  Country: US (occurrence: None)
  Receive Date: 20220801
  Receipt Date: 20220801
  Transmission Date: 20221027
  Serious: Yes (Other)
  Sender: FDA-Public Use
  Company Number: None

PATIENT
  Age: 45 Year
  Sex: Male

DRUGS (16)
  1. ADEMPAS [Suspect]
     Active Substance: RIOCIGUAT
     Indication: Pulmonary hypertension
     Dosage: FREQUENCY : 3 TIMES A DAY;?
     Route: 048
     Dates: start: 20220121, end: 20220629
  2. NORCO [Concomitant]
     Active Substance: ACETAMINOPHEN\HYDROCODONE BITARTRATE
  3. HYDROMORPHONE [Concomitant]
     Active Substance: HYDROMORPHONE
  4. ENOXAPARIN [Concomitant]
     Active Substance: ENOXAPARIN
  5. IMITREX [Concomitant]
     Active Substance: SUMATRIPTAN SUCCINATE
  6. DIVALPROEX SODIUM [Concomitant]
     Active Substance: DIVALPROEX SODIUM
  7. symbicort HFA [Concomitant]
  8. GABAPENTIN [Concomitant]
     Active Substance: GABAPENTIN
  9. ALLOPURINOL [Concomitant]
     Active Substance: ALLOPURINOL
  10. ALBUTEROL SULFATE [Concomitant]
     Active Substance: ALBUTEROL SULFATE
  11. TORSEMIDE [Concomitant]
     Active Substance: TORSEMIDE
  12. BACLOFEN [Concomitant]
     Active Substance: BACLOFEN
  13. DULOXETINE [Concomitant]
     Active Substance: DULOXETINE
  14. PRAVASTATIN [Concomitant]
     Active Substance: PRAVASTATIN
  15. PANTOPRAZOLE [Concomitant]
     Active Substance: PANTOPRAZOLE
  16. nacan nasl spray [Concomitant]

REACTIONS (2)
  - Therapy change [None]
  - Drug ineffective [None]

NARRATIVE: CASE EVENT DATE: 20220629
